FAERS Safety Report 5833424-6 (Version None)
Quarter: 2008Q3

REPORT INFORMATION
  Report Type: 
  Country: None (occurrence: None)
  Receive Date: 20080804
  Receipt Date: 20080804
  Transmission Date: 20090109
  Serious: Yes (Other)
  Sender: FDA-Public Use
  Company Number: None

PATIENT
  Sex: Female
  Weight: 95.2554 kg

DRUGS (2)
  1. MORPHINE [Suspect]
     Indication: BACK PAIN
     Dosage: 30MG OR 60MG Q 4 HR. PO
     Route: 048
     Dates: start: 20080428
  2. MORPHINE [Suspect]
     Indication: BACK PAIN
     Dosage: 30MG OR 60MG Q 4 HR. PO
     Route: 048
     Dates: start: 20080728

REACTIONS (3)
  - HEADACHE [None]
  - PHARMACEUTICAL PRODUCT COMPLAINT [None]
  - THERAPEUTIC PRODUCT CONTAMINATION [None]
